FAERS Safety Report 7237208-6 (Version None)
Quarter: 2011Q1

REPORT INFORMATION
  Report Type: 
  Country: None (occurrence: None)
  Receive Date: 20110111
  Receipt Date: 20110103
  Transmission Date: 20110831
  Serious: Yes (Hospitalization, Other)
  Sender: FDA-Public Use
  Company Number: DSA_44563_2010

PATIENT
  Sex: Female

DRUGS (7)
  1. PRONEURIN (PRONEURIN) 25 MG (NOT SPECIFIED) [Suspect]
     Indication: PRODUCT USED FOR UNKNOWN INDICATION
     Dosage: (625 MG 1X ORAL)
     Route: 048
     Dates: start: 20101220, end: 20101220
  2. ASS (ASS) 100 MG (NOT SPECIFIED) [Suspect]
     Indication: PRODUCT USED FOR UNKNOWN INDICATION
     Dosage: (1300 MG 1X ORAL)
     Route: 048
     Dates: start: 20101220, end: 20101220
  3. NOVAMINSULFON (NOVAMINOSULFON) 500 MG [Suspect]
     Indication: PRODUCT USED FOR UNKNOWN INDICATION
     Dosage: (2500 MG 1X ORAL)
     Route: 048
     Dates: start: 20101220, end: 20101220
  4. OMEPRAZOLE [Suspect]
     Indication: PRODUCT USED FOR UNKNOWN INDICATION
     Dosage: (21 TABLETS (UNKNOWN DOSAGE) ORAL))
     Route: 048
     Dates: start: 20101220, end: 20101220
  5. ASPIRIN [Suspect]
     Indication: PRODUCT USED FOR UNKNOWN INDICATION
     Dosage: (3500 MG 1X ORAL)
     Route: 048
     Dates: start: 20101220, end: 20101220
  6. ELONTRIL (ELONTRIL-BUPROPION HYDROCHLORIDE EXTENDED RELEASE) 150 MG (N [Suspect]
     Indication: PRODUCT USED FOR UNKNOWN INDICATION
     Dosage: (15150 MG 1X ORAL)
     Route: 048
     Dates: start: 20101220, end: 20101220
  7. ETHANOL (ETHANOL) 3 1 [Suspect]
     Indication: PRODUCT USED FOR UNKNOWN INDICATION
     Dosage: (3 1 1X ORAL)
     Route: 048
     Dates: start: 20101220, end: 20101220

REACTIONS (7)
  - TOXICITY TO VARIOUS AGENTS [None]
  - STUPOR [None]
  - CONVULSION [None]
  - SYSTOLIC HYPERTENSION [None]
  - MULTIPLE DRUG OVERDOSE INTENTIONAL [None]
  - PUPILLARY LIGHT REFLEX TESTS ABNORMAL [None]
  - SUICIDE ATTEMPT [None]
